FAERS Safety Report 4847988-2 (Version None)
Quarter: 2005Q4

REPORT INFORMATION
  Report Type: 
  Country: None (occurrence: None)
  Receive Date: 20051206
  Receipt Date: 20051123
  Transmission Date: 20060501
  Serious: Yes (Life-Threatening)
  Sender: FDA-Public Use
  Company Number: 6018747F

PATIENT
  Age: 50 Year
  Sex: Male

DRUGS (5)
  1. NIASPAN [Suspect]
     Indication: HYPERLIPIDAEMIA
     Dosage: 1000 MG QD PO
     Route: 048
     Dates: end: 20051110
  2. ASPIRIN [Suspect]
     Indication: PROPHYLAXIS
     Dosage: 75 MG QD PO
     Route: 048
     Dates: start: 19980101
  3. FLECAINIDE ACETATE [Concomitant]
  4. ENALAPRIL [Concomitant]
  5. OMEPRAZOLE [Concomitant]

REACTIONS (4)
  - DIARRHOEA [None]
  - DUODENAL ULCER [None]
  - HAEMATEMESIS [None]
  - VOMITING [None]
